FAERS Safety Report 10022728 (Version 3)
Quarter: 2014Q1

REPORT INFORMATION
  Report Type: Spontaneous
  Country: US (occurrence: US)
  Receive Date: 20140319
  Receipt Date: 20140328
  Transmission Date: 20141002
  Serious: Yes (Hospitalization)
  Sender: FDA-Public Use
  Company Number: US-B.I. PHARMACEUTICALS,INC./RIDGEFIELD-2012-BP-11036BP

PATIENT
  Age: 71 Year
  Sex: Female
  Weight: 59.87 kg

DRUGS (15)
  1. PRADAXA [Suspect]
     Indication: ATRIAL FIBRILLATION
     Dosage: 150 MG
     Route: 065
     Dates: start: 20111112, end: 20111125
  2. PRADAXA [Suspect]
     Indication: ANTICOAGULANT THERAPY
  3. CALCIUM [Concomitant]
     Route: 065
  4. BABY ASPIRIN [Concomitant]
     Indication: ATRIAL FIBRILLATION
     Dosage: 325 MG
     Route: 065
  5. MULTI-VITAMIN [Concomitant]
     Route: 065
  6. MELOXICAM [Concomitant]
     Indication: INFLAMMATION
     Route: 065
     Dates: start: 200705, end: 201111
  7. MELOXICAM [Concomitant]
     Indication: OSTEOARTHRITIS
  8. METOPROLOL [Concomitant]
     Dosage: 200 MG
     Route: 065
     Dates: start: 201109, end: 201111
  9. AMIODARONE [Concomitant]
     Route: 065
     Dates: start: 200411, end: 201111
  10. METHOTREXATE [Concomitant]
     Route: 065
     Dates: start: 200912, end: 201111
  11. LISINOPRIL [Concomitant]
     Route: 065
     Dates: start: 200809, end: 201111
  12. DILTIAZEM [Concomitant]
     Dosage: 180 MG
     Route: 065
     Dates: start: 201110, end: 201111
  13. LASIX [Concomitant]
     Dosage: 40 MG
     Route: 065
     Dates: start: 201110, end: 201111
  14. KLOR-CON [Concomitant]
     Route: 065
     Dates: start: 201110, end: 201111
  15. BUMEX [Concomitant]
     Dosage: 1 MG
     Route: 065
     Dates: start: 201110, end: 201111

REACTIONS (4)
  - Gastrointestinal haemorrhage [Unknown]
  - Rectal haemorrhage [Unknown]
  - Haematochezia [Unknown]
  - Iron deficiency anaemia [Unknown]
